FAERS Safety Report 11542294 (Version 1)
Quarter: 2015Q3

REPORT INFORMATION
  Report Type: Spontaneous
  Country: CA (occurrence: CA)
  Receive Date: 20150923
  Receipt Date: 20150923
  Transmission Date: 20151125
  Serious: Yes (Other)
  Sender: FDA-Public Use
  Company Number: CA-BAUSCH-BL-2015-021717

PATIENT
  Age: 82 Year
  Sex: Male

DRUGS (2)
  1. CEFTRIAXONE. [Concomitant]
     Active Substance: CEFTRIAXONE
     Indication: OSTEOMYELITIS
  2. METRONIDAZOLE. [Suspect]
     Active Substance: METRONIDAZOLE
     Indication: OSTEOMYELITIS
     Route: 065

REACTIONS (1)
  - Encephalopathy [Recovered/Resolved]
